FAERS Safety Report 22842628 (Version 4)
Quarter: 2023Q4

REPORT INFORMATION
  Report Type: Spontaneous
  Country: JP (occurrence: JP)
  Receive Date: 20230821
  Receipt Date: 20231009
  Transmission Date: 20240110
  Serious: Yes (Death, Hospitalization, Other)
  Sender: FDA-Public Use
  Company Number: JP-BRISTOL-MYERS SQUIBB COMPANY-2023-114671

PATIENT
  Age: 68 Year
  Sex: Male
  Weight: 68.8 kg

DRUGS (10)
  1. ELIQUIS [Suspect]
     Active Substance: APIXABAN
     Indication: Cardiac amyloidosis
     Route: 048
     Dates: end: 20200221
  2. VYNDAQEL [Suspect]
     Active Substance: TAFAMIDIS MEGLUMINE
     Indication: Cardiac amyloidosis
     Dates: start: 20190722, end: 20200221
  3. TORSEMIDE [Concomitant]
     Active Substance: TORSEMIDE
     Indication: Cardiac amyloidosis
     Route: 048
     Dates: end: 20200221
  4. FUROSEMIDE [Concomitant]
     Active Substance: FUROSEMIDE
     Indication: Cardiac amyloidosis
     Route: 048
     Dates: end: 20200221
  5. BISOPROLOL [Concomitant]
     Active Substance: BISOPROLOL\BISOPROLOL FUMARATE
     Indication: Cardiac amyloidosis
     Route: 048
     Dates: end: 20200221
  6. SAMSCA [Concomitant]
     Active Substance: TOLVAPTAN
     Indication: Cardiac amyloidosis
     Route: 048
     Dates: end: 20200221
  7. DAPAGLIFLOZIN [Concomitant]
     Active Substance: DAPAGLIFLOZIN
     Indication: Cardiac amyloidosis
     Route: 048
     Dates: end: 20200221
  8. SPIRONOLACTONE [Concomitant]
     Active Substance: SPIRONOLACTONE
     Indication: Cardiac amyloidosis
     Route: 048
     Dates: end: 20200221
  9. ENALAPRIL [Concomitant]
     Active Substance: ENALAPRIL
     Indication: Cardiac amyloidosis
     Route: 048
     Dates: end: 20200221
  10. AMIODARONE [Concomitant]
     Active Substance: AMIODARONE
     Indication: Cardiac amyloidosis
     Route: 048
     Dates: end: 20200221

REACTIONS (3)
  - Off label use [Unknown]
  - Cardiac failure congestive [Recovering/Resolving]
  - Cardio-respiratory arrest [Fatal]

NARRATIVE: CASE EVENT DATE: 20191003
